FAERS Safety Report 8251388-5 (Version None)
Quarter: 2012Q2

REPORT INFORMATION
  Report Type: 
  Country: None (occurrence: None)
  Receive Date: 20120402
  Receipt Date: 20120327
  Transmission Date: 20120825
  Serious: Yes (Hospitalization)
  Sender: FDA-Public Use
  Company Number: JP-PFIZER INC-2011027407

PATIENT
  Age: 79 Year
  Sex: Female

DRUGS (2)
  1. EPLERENONE [Suspect]
     Dosage: UNK
     Route: 048
     Dates: start: 20081110
  2. ASPIRIN [Suspect]
     Dosage: UNK
     Dates: start: 20100401

REACTIONS (3)
  - HAEMOLYTIC ANAEMIA [None]
  - PLATELET COUNT DECREASED [None]
  - HEPATIC FUNCTION ABNORMAL [None]
